FAERS Safety Report 15336119 (Version 10)
Quarter: 2020Q3

REPORT INFORMATION
  Report Type: Report from Study
  Country: CO (occurrence: CO)
  Receive Date: 20180830
  Receipt Date: 20200902
  Transmission Date: 20201102
  Serious: Yes (Hospitalization)
  Sender: FDA-Public Use
  Company Number: CO-TAKEDA-2018TUS024762

PATIENT
  Age: 41 Year
  Sex: Female
  Weight: 62 kg

DRUGS (3)
  1. VEDOLIZUMAB [Suspect]
     Active Substance: VEDOLIZUMAB
     Dosage: 300 MILLIGRAM
     Route: 042
  2. MESALAMINE. [Concomitant]
     Active Substance: MESALAMINE
     Dosage: 2 GRAM, BID
  3. VEDOLIZUMAB [Suspect]
     Active Substance: VEDOLIZUMAB
     Indication: COLITIS ULCERATIVE
     Dosage: 300 MILLIGRAM
     Route: 042
     Dates: start: 20180810

REACTIONS (23)
  - Frequent bowel movements [Recovered/Resolved]
  - Haematochezia [Recovered/Resolved]
  - Weight increased [Unknown]
  - Gastroenteritis [Not Recovered/Not Resolved]
  - Influenza [Recovered/Resolved]
  - Diarrhoea [Not Recovered/Not Resolved]
  - Chills [Unknown]
  - Malaise [Recovered/Resolved]
  - Pyrexia [Recovered/Resolved]
  - Off label use [Unknown]
  - Nausea [Recovered/Resolved]
  - Headache [Not Recovered/Not Resolved]
  - Colitis ulcerative [Not Recovered/Not Resolved]
  - Bronchitis [Recovering/Resolving]
  - Rectal haemorrhage [Not Recovered/Not Resolved]
  - Somnolence [Not Recovered/Not Resolved]
  - Colitis [Recovered/Resolved]
  - Abdominal pain [Recovered/Resolved]
  - Blood pressure decreased [Not Recovered/Not Resolved]
  - Gastrointestinal infection [Not Recovered/Not Resolved]
  - Vomiting [Recovered/Resolved]
  - Hypotension [Recovered/Resolved]
  - Back pain [Unknown]

NARRATIVE: CASE EVENT DATE: 20180930
